FAERS Safety Report 7749979-0 (Version None)
Quarter: 2011Q3

REPORT INFORMATION
  Report Type: 
  Country: None (occurrence: None)
  Receive Date: 20110914
  Receipt Date: 20110905
  Transmission Date: 20111222
  Serious: Yes (Other)
  Sender: FDA-Public Use
  Company Number: JP-PFIZER INC-2011207360

PATIENT
  Age: 19 Year
  Sex: Male

DRUGS (1)
  1. SOLU-CORTEF [Suspect]
     Indication: ASTHMA
     Dosage: 300 MG, UNK

REACTIONS (3)
  - SHOCK [None]
  - CONVULSION [None]
  - RESPIRATORY ARREST [None]
